FAERS Safety Report 16961722 (Version 12)
Quarter: 2020Q1

REPORT INFORMATION
  Report Type: Report from Study
  Country: TR (occurrence: TR)
  Receive Date: 20191025
  Receipt Date: 20200102
  Transmission Date: 20200409
  Serious: Yes (Death, Hospitalization)
  Sender: FDA-Public Use
  Company Number: TR-EISAI MEDICAL RESEARCH-EC-2019-064211

PATIENT
  Age: 67 Year
  Sex: Male
  Weight: 61 kg

DRUGS (12)
  1. GERALGINE PLUS [Concomitant]
     Dates: start: 20190918, end: 20191016
  2. PEMBROLIZUMAB. [Suspect]
     Active Substance: PEMBROLIZUMAB
     Route: 048
     Dates: start: 20191010, end: 20191010
  3. LENVATINIB [Suspect]
     Active Substance: LENVATINIB
     Indication: TRANSITIONAL CELL CARCINOMA
     Dosage: STARTING DOSE: 20 MG, FLUCTUATED DOSAGE
     Route: 048
     Dates: start: 20190829, end: 20191010
  4. MEGACE [Concomitant]
     Active Substance: MEGESTROL ACETATE
     Dates: start: 20190829, end: 20191016
  5. PEMBROLIZUMAB. [Suspect]
     Active Substance: PEMBROLIZUMAB
     Indication: TRANSITIONAL CELL CARCINOMA
     Route: 048
     Dates: start: 20190829, end: 20190919
  6. DUROGESIC [Concomitant]
     Active Substance: FENTANYL
     Dates: start: 20191010, end: 20191015
  7. FOSTER [Concomitant]
     Active Substance: BECLOMETHASONE\FORMOTEROL
     Dates: start: 201801, end: 20191016
  8. IMPACT [Concomitant]
     Dates: start: 20191010
  9. IESEF [Concomitant]
     Route: 042
     Dates: start: 20191012, end: 20191021
  10. LENVATINIB [Suspect]
     Active Substance: LENVATINIB
     Route: 048
     Dates: start: 20191011, end: 20191011
  11. NEXIUM [Concomitant]
     Active Substance: ESOMEPRAZOLE MAGNESIUM
     Dates: start: 20190928, end: 20191016
  12. EMETRIL [Concomitant]
     Dates: start: 20191010, end: 20191016

REACTIONS (1)
  - Dizziness [Recovering/Resolving]

NARRATIVE: CASE EVENT DATE: 20191015
